FAERS Safety Report 6519819-6 (Version None)
Quarter: 2009Q4

REPORT INFORMATION
  Report Type: 
  Country: None (occurrence: None)
  Receive Date: 20091228
  Receipt Date: 20091228
  Transmission Date: 20100525
  Serious: Yes (Disabling)
  Sender: FDA-Public Use
  Company Number: None

PATIENT
  Age: 61 Year
  Sex: Male
  Weight: 68.0396 kg

DRUGS (1)
  1. DILANTIN [Suspect]
     Indication: EPILEPSY
     Dosage: 400 MG 2 TIMES PER DAY
     Dates: start: 20090826, end: 20091201

REACTIONS (5)
  - EAR DISORDER [None]
  - EAR PRURITUS [None]
  - PRODUCT SUBSTITUTION ISSUE [None]
  - PRURITUS [None]
  - TINNITUS [None]
